FAERS Safety Report 9372918 (Version 2)
Quarter: 2013Q2

REPORT INFORMATION
  Report Type: Spontaneous
  Country: JP (occurrence: None)
  Receive Date: 20130607
  Receipt Date: 20130613
  Transmission Date: 20140414
  Serious: Yes (Life-Threatening, Other)
  Sender: FDA-Public Use
  Company Number: 2013036372

PATIENT
  Age: 59 Year
  Sex: Female

DRUGS (6)
  1. ALBUMINAR [Suspect]
     Indication: HYPOALBUMINAEMIA
     Dosage: 12.5 G, 12.5G/50ML
     Route: 042
     Dates: start: 20130313, end: 20130315
  2. ALBUMINAR [Suspect]
     Indication: OEDEMA
     Dosage: 12.5 G, 12.5G/50ML
     Route: 042
     Dates: start: 20130313, end: 20130315
  3. ALBUMINAR [Suspect]
     Indication: LIVER DISORDER
     Dosage: 12.5 G, 12.5G/50ML
     Route: 042
     Dates: start: 20130313, end: 20130315
  4. CEFTRIAXONE (CEFTRIAXONE) [Concomitant]
  5. FUROSEMIDE (FUROSEMIDE) [Concomitant]
  6. VENECTOMIN TAIYO (POTASSIUM CANRENOATE) [Concomitant]

REACTIONS (5)
  - Pruritus [None]
  - Rash [None]
  - Urticaria [None]
  - Dyspnoea [None]
  - Oxygen saturation decreased [None]
